FAERS Safety Report 15250688 (Version 2)
Quarter: 2018Q3

REPORT INFORMATION
  Report Type: Spontaneous
  Country: US (occurrence: US)
  Receive Date: 20180807
  Receipt Date: 20180821
  Transmission Date: 20181010
  Serious: Yes (Hospitalization)
  Sender: FDA-Public Use
  Company Number: US-TEVA-2018-US-937938

PATIENT
  Age: 25 Year
  Sex: Female

DRUGS (2)
  1. RITUXIMAB. [Suspect]
     Active Substance: RITUXIMAB
     Indication: PARANEOPLASTIC PEMPHIGUS
     Dosage: 6 CYCLES
     Route: 065
  2. CICLOSPORIN [Suspect]
     Active Substance: CYCLOSPORINE
     Indication: PARANEOPLASTIC PEMPHIGUS
     Route: 065

REACTIONS (8)
  - Respiratory tract infection viral [Not Recovered/Not Resolved]
  - Bronchiectasis [Not Recovered/Not Resolved]
  - Pulmonary hypertension [Not Recovered/Not Resolved]
  - Respiratory tract infection [Not Recovered/Not Resolved]
  - Mycobacterial infection [Not Recovered/Not Resolved]
  - Respiratory tract infection fungal [Not Recovered/Not Resolved]
  - Small airways disease [Not Recovered/Not Resolved]
  - Respiratory tract infection bacterial [Not Recovered/Not Resolved]
